FAERS Safety Report 21320015 (Version 1)
Quarter: 2022Q3

REPORT INFORMATION
  Report Type: Spontaneous
  Country: US (occurrence: US)
  Receive Date: 20220911
  Receipt Date: 20220911
  Transmission Date: 20221027
  Serious: No
  Sender: FDA-Public Use
  Company Number: US-SA-SAC20220906001479

PATIENT
  Sex: Female
  Weight: 18 kg

DRUGS (12)
  1. KEVZARA [Suspect]
     Active Substance: SARILUMAB
     Indication: Rheumatoid arthritis
     Dosage: 200 MG, QOW
     Route: 058
     Dates: start: 20220511
  2. ZYRTEC [Concomitant]
     Active Substance: CETIRIZINE HYDROCHLORIDE
  3. FLONASE ALLERGY RELIEF [Concomitant]
     Active Substance: FLUTICASONE PROPIONATE
  4. DESOXIMETASONE [Concomitant]
     Active Substance: DESOXIMETASONE
  5. IRON [Concomitant]
     Active Substance: IRON
  6. CHOLECALCIFEROL\FISH OIL [Concomitant]
     Active Substance: CHOLECALCIFEROL\FISH OIL
  7. CURCUMIN [Concomitant]
     Active Substance: CURCUMIN
  8. VITAMIN C [Concomitant]
     Active Substance: ASCORBIC ACID
  9. LEFLUNOMIDE [Concomitant]
     Active Substance: LEFLUNOMIDE
  10. PLAQUENIL [Concomitant]
     Active Substance: HYDROXYCHLOROQUINE SULFATE
  11. PROBIOTIC 10 [BIFIDOBACTERIUM LACTIS;LACTOBACILLUS ACIDOPHILUS;LACTOBA [Concomitant]
  12. TART CHERRY [Concomitant]

REACTIONS (3)
  - Injection site erythema [Unknown]
  - Injection site discolouration [Unknown]
  - Injection site swelling [Unknown]
